FAERS Safety Report 8440229-9 (Version None)
Quarter: 2012Q2

REPORT INFORMATION
  Report Type: 
  Country: None (occurrence: None)
  Receive Date: 20120615
  Receipt Date: 20120605
  Transmission Date: 20120825
  Serious: Yes (Hospitalization, Other)
  Sender: FDA-Public Use
  Company Number: US-ABBOTT-12P-163-0943177-00

PATIENT
  Sex: Female
  Weight: 90.346 kg

DRUGS (9)
  1. PLAQUENIL [Concomitant]
     Indication: RHEUMATOID ARTHRITIS
  2. ASPIRIN [Concomitant]
     Indication: CARDIAC DISORDER
  3. RESTORIL [Concomitant]
     Indication: INSOMNIA
  4. VITAMIN B-12 [Concomitant]
     Indication: VITAMIN B COMPLEX DEFICIENCY
  5. HUMIRA [Suspect]
     Indication: RHEUMATOID ARTHRITIS
     Dates: start: 20090401, end: 20091101
  6. CELEBREX [Concomitant]
     Indication: RHEUMATOID ARTHRITIS
  7. HUMIRA [Suspect]
     Dates: start: 20120523
  8. PROZAC [Concomitant]
     Indication: DEPRESSION
  9. SIMVASTATIN [Concomitant]
     Indication: BLOOD CHOLESTEROL INCREASED

REACTIONS (5)
  - DIVERTICULITIS [None]
  - STRESS [None]
  - ENTEROVESICAL FISTULA [None]
  - URINARY TRACT INFECTION [None]
  - LUNG SQUAMOUS CELL CARCINOMA STAGE UNSPECIFIED [None]
